FAERS Safety Report 12437512 (Version 6)
Quarter: 2020Q3

REPORT INFORMATION
  Report Type: Spontaneous
  Country: JP (occurrence: JP)
  Receive Date: 20160606
  Receipt Date: 20200907
  Transmission Date: 20201102
  Serious: Yes (Hospitalization, Other)
  Sender: FDA-Public Use
  Company Number: PHJP2016JP014656

PATIENT
  Age: 17 Year
  Sex: Male
  Weight: 54 kg

DRUGS (18)
  1. NEORAL [Suspect]
     Active Substance: CYCLOSPORINE
     Dosage: 5 MG/KG, UNK
     Route: 065
  2. NEORAL [Suspect]
     Active Substance: CYCLOSPORINE
     Dosage: 3.6 MG/KG, UNK
     Route: 065
  3. NEORAL [Suspect]
     Active Substance: CYCLOSPORINE
     Dosage: 1.8 MG/KG, UNK
     Route: 065
  4. NEORAL [Suspect]
     Active Substance: CYCLOSPORINE
     Indication: PSORIATIC ARTHROPATHY
     Dosage: 2.5 MG/KG, UNK
     Route: 065
  5. GANCICLOVIR. [Concomitant]
     Active Substance: GANCICLOVIR
     Indication: PRODUCT USED FOR UNKNOWN INDICATION
     Dosage: UNK
     Route: 065
  6. LIMETHASON GC [Concomitant]
     Indication: PRODUCT USED FOR UNKNOWN INDICATION
     Dosage: UNK
     Route: 065
  7. NEORAL [Suspect]
     Active Substance: CYCLOSPORINE
     Indication: HAEMOPHAGOCYTIC LYMPHOHISTIOCYTOSIS
     Dosage: UNK
     Route: 065
  8. PREDNISOLONE. [Suspect]
     Active Substance: PREDNISOLONE
     Dosage: 30 MG, UNK
     Route: 065
  9. TOCILIZUMAB. [Concomitant]
     Active Substance: TOCILIZUMAB
     Dosage: UNK
     Route: 065
     Dates: start: 201402
  10. METHOTREXATE. [Concomitant]
     Active Substance: METHOTREXATE
     Indication: PRODUCT USED FOR UNKNOWN INDICATION
     Dosage: UNK
     Route: 065
  11. NEORAL [Suspect]
     Active Substance: CYCLOSPORINE
     Dosage: 3.6 MG/KG, UNK
     Route: 065
  12. PREDNISOLONE. [Suspect]
     Active Substance: PREDNISOLONE
     Dosage: 12 MG, UNK
     Route: 065
  13. PREDNISOLONE. [Suspect]
     Active Substance: PREDNISOLONE
     Dosage: 12 MG, UNK
     Route: 065
  14. TOCILIZUMAB. [Concomitant]
     Active Substance: TOCILIZUMAB
     Indication: STILL^S DISEASE
     Dosage: UNK
     Route: 065
     Dates: start: 201211, end: 201310
  15. NAPROXEN. [Concomitant]
     Active Substance: NAPROXEN
     Indication: PRODUCT USED FOR UNKNOWN INDICATION
     Dosage: UNK
     Route: 065
  16. NEORAL [Suspect]
     Active Substance: CYCLOSPORINE
     Dosage: 1.8 MG/KG, UNK
     Route: 065
  17. PREDNISOLONE. [Suspect]
     Active Substance: PREDNISOLONE
     Indication: STILL^S DISEASE
     Dosage: UNK
     Route: 065
  18. PREDNISOLONE. [Suspect]
     Active Substance: PREDNISOLONE
     Dosage: 10 MG, UNK
     Route: 065

REACTIONS (14)
  - Haemophagocytic lymphohistiocytosis [Unknown]
  - Disease recurrence [Unknown]
  - Oedema peripheral [Unknown]
  - Osteonecrosis [Unknown]
  - Arthralgia [Unknown]
  - Pneumocystis jirovecii pneumonia [Unknown]
  - Small intestinal haemorrhage [Unknown]
  - Nephrolithiasis [Unknown]
  - Spinal compression fracture [Unknown]
  - Gastroenteritis norovirus [Unknown]
  - Nasopharyngitis [Unknown]
  - Product use in unapproved indication [Unknown]
  - Cytomegalovirus infection [Unknown]
  - Ureterolithiasis [Unknown]

NARRATIVE: CASE EVENT DATE: 201312
